FAERS Safety Report 22538571 (Version 1)
Quarter: 2023Q2

REPORT INFORMATION
  Report Type: Spontaneous
  Country: CN (occurrence: CN)
  Receive Date: 20230609
  Receipt Date: 20230609
  Transmission Date: 20230722
  Serious: Yes (Other)
  Sender: FDA-Public Use
  Company Number: CN-QILU PHARMACEUTICAL (HAINAN) CO., LTD.-QLH-000089-2023

PATIENT
  Age: 50 Year
  Sex: Male
  Weight: 53 kg

DRUGS (2)
  1. OXALIPLATIN [Suspect]
     Active Substance: OXALIPLATIN
     Indication: Rectal adenocarcinoma
     Dosage: FIVE CYCLES, ON DAY 1 AS A PART OF XELOX REGIMEN
     Route: 042
     Dates: start: 2020, end: 2020
  2. CAPECITABINE [Concomitant]
     Active Substance: CAPECITABINE
     Indication: Rectal adenocarcinoma
     Dosage: FIVE CYCLES, EVENING OF DAY 1 TO DAY 15 MORNING, AS A PART OF XELOX REGIMEN
     Route: 048
     Dates: start: 2020, end: 2020

REACTIONS (2)
  - Hepatic cirrhosis [Recovering/Resolving]
  - Splenomegaly [Recovered/Resolved]

NARRATIVE: CASE EVENT DATE: 20200801
